FAERS Safety Report 10704857 (Version 1)
Quarter: 2014Q4

REPORT INFORMATION
  Report Type: Report from Study
  Country: US (occurrence: None)
  Receive Date: 20141224
  Receipt Date: 20141224
  Transmission Date: 20150529
  Serious: No
  Sender: FDA-Public Use
  Company Number: CABO-14004740

PATIENT
  Age: 52 Year
  Sex: Female

DRUGS (1)
  1. COMETRIQ [Suspect]
     Active Substance: CABOZANTINIB S-MALATE
     Indication: LUNG NEOPLASM MALIGNANT
     Route: 048
     Dates: start: 20140726, end: 20140911

REACTIONS (10)
  - Laceration [None]
  - Oedema peripheral [None]
  - Off label use [None]
  - Dizziness [None]
  - Pain in extremity [None]
  - Diarrhoea [None]
  - Hypertension [None]
  - Erythema [None]
  - Skin fissures [None]
  - Malignant neoplasm progression [None]

NARRATIVE: CASE EVENT DATE: 20140831
